FAERS Safety Report 11586637 (Version 2)
Quarter: 2015Q4

REPORT INFORMATION
  Report Type: Spontaneous
  Country: US (occurrence: US)
  Receive Date: 20151001
  Receipt Date: 20151009
  Transmission Date: 20160304
  Serious: No
  Sender: FDA-Public Use
  Company Number: US-PFIZER INC-2015314480

PATIENT
  Age: 56 Year
  Sex: Female
  Weight: 111 kg

DRUGS (1)
  1. CRIZOTINIB [Suspect]
     Active Substance: CRIZOTINIB
     Indication: NON-SMALL CELL LUNG CANCER
     Dosage: UNK
     Dates: start: 20131114, end: 20150907

REACTIONS (2)
  - Non-small cell lung cancer [Unknown]
  - Disease progression [Unknown]
